FAERS Safety Report 13688627 (Version 1)
Quarter: 2017Q2

REPORT INFORMATION
  Report Type: Spontaneous
  Country: US (occurrence: US)
  Receive Date: 20170623
  Receipt Date: 20170623
  Transmission Date: 20170830
  Serious: No
  Sender: FDA-Public Use
  Company Number: None

PATIENT
  Age: 51 Year
  Sex: Female

DRUGS (1)
  1. ESTRADIOL 0.05MG PATCHES MYLAN [Suspect]
     Active Substance: ESTRADIOL
     Dosage: ONE PATCH TWICE A WEEK CUTANEOUS
     Route: 003
     Dates: start: 201611, end: 201706

REACTIONS (5)
  - Product adhesion issue [None]
  - Mood altered [None]
  - Application site urticaria [None]
  - Increased appetite [None]
  - Night sweats [None]

NARRATIVE: CASE EVENT DATE: 20170404
